FAERS Safety Report 25755729 (Version 1)
Quarter: 2025Q3

REPORT INFORMATION
  Report Type: Spontaneous
  Country: US (occurrence: None)
  Receive Date: 20250902
  Receipt Date: 20250902
  Transmission Date: 20251021
  Serious: Yes (Other)
  Sender: FDA-CTU
  Company Number: None

PATIENT
  Age: 17 Year
  Sex: Female
  Weight: 56.6 kg

DRUGS (4)
  1. RISPERIDONE [Suspect]
     Active Substance: RISPERIDONE
     Indication: Affective disorder
     Dosage: FREQUENCY : AT BEDTIME;?
     Route: 048
     Dates: start: 20250612
  2. risperidone 0.5 mg po BID [Concomitant]
     Dates: start: 20250612
  3. Risperidone 0.25 mg po q12h PRN [Concomitant]
     Dates: start: 20250612
  4. aripiprazole 5 mg po QD [Concomitant]

REACTIONS (3)
  - Breast discharge [None]
  - Hyperprolactinaemia [None]
  - Therapy change [None]

NARRATIVE: CASE EVENT DATE: 20250712
